FAERS Safety Report 23693616 (Version 1)
Quarter: 2024Q2

REPORT INFORMATION
  Report Type: Spontaneous
  Country: CN (occurrence: CN)
  Receive Date: 20240401
  Receipt Date: 20240401
  Transmission Date: 20240715
  Serious: Yes (Other)
  Sender: FDA-Public Use
  Company Number: CN-BAYER-2024A047149

PATIENT
  Age: 63 Year
  Sex: Female
  Weight: 51 kg

DRUGS (1)
  1. AVELOX [Suspect]
     Active Substance: MOXIFLOXACIN HYDROCHLORIDE
     Indication: Bronchitis
     Dosage: 1 DF, QD
     Route: 048
     Dates: start: 20240327, end: 20240328

REACTIONS (5)
  - Myalgia [Recovering/Resolving]
  - Bone pain [Recovering/Resolving]
  - Face oedema [Recovering/Resolving]
  - Swelling face [Recovering/Resolving]
  - Pain in jaw [Recovering/Resolving]

NARRATIVE: CASE EVENT DATE: 20240328
